FAERS Safety Report 19046847 (Version 3)
Quarter: 2021Q2

REPORT INFORMATION
  Report Type: Report from Study
  Country: US (occurrence: US)
  Receive Date: 20210323
  Receipt Date: 20210528
  Transmission Date: 20210717
  Serious: Yes (Death)
  Sender: FDA-Public Use
  Company Number: US-JNJFOC-20210335885

PATIENT
  Age: 65 Year
  Sex: Male

DRUGS (1)
  1. REMICADE [Suspect]
     Active Substance: INFLIXIMAB
     Indication: IMMUNE-MEDIATED LUNG DISEASE
     Route: 042

REACTIONS (4)
  - Product use in unapproved indication [Unknown]
  - Pneumonia pseudomonal [Fatal]
  - Pneumonia serratia [Fatal]
  - Off label use [Unknown]
